FAERS Safety Report 9143103 (Version 1)
Quarter: 2013Q1

REPORT INFORMATION
  Report Type: Spontaneous
  Country: US (occurrence: US)
  Receive Date: 20130306
  Receipt Date: 20130306
  Transmission Date: 20140127
  Serious: Yes (Disabling, Other)
  Sender: FDA-Public Use
  Company Number: US-009507513-1303USA001196

PATIENT
  Sex: Female

DRUGS (1)
  1. CLINORIL [Suspect]

REACTIONS (1)
  - Hypersensitivity [Unknown]
